FAERS Safety Report 12584355 (Version 1)
Quarter: 2016Q3

REPORT INFORMATION
  Report Type: Spontaneous
  Country: IT (occurrence: IT)
  Receive Date: 20160722
  Receipt Date: 20160722
  Transmission Date: 20161109
  Serious: Yes (Other)
  Sender: FDA-Public Use
  Company Number: IT-MYLANLABS-2014M1001118

PATIENT

DRUGS (3)
  1. DILTIAZEM. [Suspect]
     Active Substance: DILTIAZEM
     Indication: ATRIAL FIBRILLATION
     Dosage: 120 MG DAILY
     Route: 048
     Dates: start: 20140629, end: 20140713
  2. SOTALOL. [Interacting]
     Active Substance: SOTALOL
     Indication: PRODUCT USED FOR UNKNOWN INDICATION
     Route: 048
     Dates: start: 20140113, end: 20140713
  3. ALAPRIL                            /00894001/ [Concomitant]
     Indication: HYPERTENSION
     Route: 048

REACTIONS (4)
  - Drug interaction [Unknown]
  - Asthenia [Recovering/Resolving]
  - Hyperhidrosis [Recovering/Resolving]
  - Loss of consciousness [Recovering/Resolving]

NARRATIVE: CASE EVENT DATE: 20140713
